FAERS Safety Report 7788121-7 (Version None)
Quarter: 2011Q3

REPORT INFORMATION
  Report Type: 
  Country: None (occurrence: None)
  Receive Date: 20110927
  Receipt Date: 20110922
  Transmission Date: 20111222
  Serious: Yes (Death)
  Sender: FDA-Public Use
  Company Number: 2011MA014260

PATIENT
  Age: 32 Year
  Sex: Female

DRUGS (3)
  1. OXYCONTIN [Suspect]
     Indication: PRODUCT USED FOR UNKNOWN INDICATION
  2. HYDROXYZINE HCL [Suspect]
     Indication: PRODUCT USED FOR UNKNOWN INDICATION
  3. METHADONE HCL [Suspect]
     Indication: PRODUCT USED FOR UNKNOWN INDICATION

REACTIONS (1)
  - TOXICITY TO VARIOUS AGENTS [None]
